FAERS Safety Report 4834745-6 (Version None)
Quarter: 2005Q4

REPORT INFORMATION
  Report Type: 
  Country: None (occurrence: None)
  Receive Date: 20051122
  Receipt Date: 20050815
  Transmission Date: 20060501
  Serious: No
  Sender: FDA-Public Use
  Company Number: US-BRISTOL-MYERS SQUIBB COMPANY-13078522

PATIENT
  Age: 69 Year
  Sex: Female
  Weight: 61 kg

DRUGS (3)
  1. PRAVACHOL [Suspect]
     Route: 048
     Dates: start: 20050301
  2. TOPROL-XL [Concomitant]
  3. BUSPIRONE HCL [Concomitant]

REACTIONS (1)
  - DRUG INEFFECTIVE [None]
